FAERS Safety Report 8577827 (Version 3)
Quarter: 2013Q3

REPORT INFORMATION
  Report Type: Spontaneous
  Country: GB (occurrence: GB)
  Receive Date: 20120524
  Receipt Date: 20130930
  Transmission Date: 20140515
  Serious: Yes (Life-Threatening, Hospitalization)
  Sender: FDA-Public Use
  Company Number: GB-PFIZER INC-2012119754

PATIENT
  Age: 56 Year
  Sex: Female
  Weight: 60 kg

DRUGS (17)
  1. SULFASALAZINE [Suspect]
     Indication: RHEUMATOID ARTHRITIS
     Dosage: 1 G, 2X/DAY
     Route: 048
     Dates: start: 20120216, end: 20120325
  2. RAMIPRIL [Concomitant]
     Indication: BLOOD PRESSURE
     Dosage: 10 MG, 1X/DAY
     Dates: start: 20090909
  3. RAMIPRIL [Concomitant]
     Dosage: 2.5 MG, 1X/DAY
     Dates: start: 20090612
  4. RAMIPRIL [Concomitant]
     Dosage: 10 MG, 1X/DAY
     Dates: start: 20090612
  5. DIHYDROCODEINE [Concomitant]
     Dosage: ONE OR TWO EVERY 4 - 6 HOURS.
     Dates: start: 20120207
  6. NAPROXEN [Concomitant]
     Dosage: 500 MG, 2X/DAY
     Dates: start: 20100504
  7. CODEINE PHOSPHATE [Concomitant]
     Dosage: ONE OR TWO TABLETS FOUR TIMES DAILY
     Dates: start: 20111130
  8. PREDNISOLONE [Concomitant]
     Dosage: 4 TABLETS TO BE TAKEN ONCE DAILY
     Dates: start: 20111215
  9. OMEPRAZOLE [Concomitant]
     Dosage: 20 MG, 1X/DAY
     Dates: start: 20111117
  10. DICLOFENAC SODIUM [Concomitant]
     Dosage: 75 MG, 2X/DAY
     Dates: start: 20111128
  11. SIMVASTATIN [Concomitant]
     Indication: HYPERCHOLESTEROLAEMIA
     Dosage: 40 MG, 1X/DAY (AT NIGHT)
     Dates: start: 20100804
  12. ALPHOSYL HC [Concomitant]
     Dosage: UNK
     Dates: start: 20070720
  13. CO-CODAMOL [Concomitant]
     Indication: PAIN
     Dosage: 30MG/500MG, ONE OR TWO TAKEN FOUR TIMES A DAY WHEN REQUIRED
     Dates: start: 20040519
  14. SODIUM CHLORIDE [Concomitant]
     Dosage: 0.9 %, UNK
     Dates: start: 20120419
  15. NICOTINE [Concomitant]
     Dosage: UNK
     Dates: start: 20110727
  16. PARACETAMOL [Concomitant]
  17. INADINE [Concomitant]
     Dosage: UNK
     Dates: start: 20120419

REACTIONS (2)
  - Neutropenia [Recovered/Resolved]
  - Sepsis [Recovered/Resolved]
